FAERS Safety Report 6455236-5 (Version None)
Quarter: 2009Q4

REPORT INFORMATION
  Report Type: 
  Country: None (occurrence: None)
  Receive Date: 20091119
  Receipt Date: 20091112
  Transmission Date: 20100525
  Serious: Yes (Other)
  Sender: FDA-Public Use
  Company Number: 432985

PATIENT
  Age: 19 Year
  Sex: Male

DRUGS (4)
  1. METHOTREXATE [Suspect]
     Indication: INFLAMMATION
     Dosage: 25 MG
  2. PREDNISONE [Suspect]
     Indication: INFLAMMATION
     Dosage: 10 MG
  3. HYDROXYCHLOROQUINE SULFATE [Suspect]
     Indication: INFLAMMATION
     Dosage: 400 MG
  4. (CALCIUM FOLINATE) [Concomitant]

REACTIONS (3)
  - CHRONIC GRANULOMATOUS DISEASE [None]
  - MUCORMYCOSIS [None]
  - PULMONARY MASS [None]
